FAERS Safety Report 5324905-2 (Version None)
Quarter: 2007Q2

REPORT INFORMATION
  Report Type: 
  Country: None (occurrence: None)
  Receive Date: 20070515
  Receipt Date: 20070508
  Transmission Date: 20071010
  Serious: Yes (Other)
  Sender: FDA-Public Use
  Company Number: PHBS2007JP07982

PATIENT
  Age: 60 Year
  Sex: Male

DRUGS (2)
  1. AMLODIN [Concomitant]
     Dosage: 5 MG/DAY
     Route: 048
  2. LAMISIL [Suspect]
     Indication: NAIL TINEA
     Dosage: 125 MG/DAY
     Route: 048
     Dates: start: 20070122, end: 20070422

REACTIONS (4)
  - DIZZINESS [None]
  - HEADACHE [None]
  - NAUSEA [None]
  - OBSESSIVE-COMPULSIVE DISORDER [None]
